FAERS Safety Report 16425735 (Version 1)
Quarter: 2019Q2

REPORT INFORMATION
  Report Type: Spontaneous
  Country: US (occurrence: US)
  Receive Date: 20190613
  Receipt Date: 20190613
  Transmission Date: 20190711
  Serious: No
  Sender: FDA-Public Use
  Company Number: US-PFIZER INC-2019248961

PATIENT
  Age: 68 Year

DRUGS (1)
  1. MORPHINE SULFATE. [Suspect]
     Active Substance: MORPHINE SULFATE
     Dosage: UNK

REACTIONS (4)
  - Drug hypersensitivity [Unknown]
  - Nausea [Unknown]
  - Oedema [Unknown]
  - Urticaria [Unknown]
